FAERS Safety Report 12971902 (Version 1)
Quarter: 2016Q4

REPORT INFORMATION
  Report Type: Spontaneous
  Country: FR (occurrence: FR)
  Receive Date: 20161124
  Receipt Date: 20161124
  Transmission Date: 20170207
  Serious: Yes (Life-Threatening, Other)
  Sender: FDA-Public Use
  Company Number: FR-BAXTER-2016BAX058587

PATIENT
  Age: 37 Year
  Sex: Female
  Weight: 65 kg

DRUGS (2)
  1. TISSEEL [Suspect]
     Active Substance: FIBRINOGEN HUMAN\THROMBIN HUMAN
     Indication: OFF LABEL USE
  2. TISSEEL [Suspect]
     Active Substance: FIBRINOGEN HUMAN\THROMBIN HUMAN
     Indication: TISSUE SEALING
     Route: 061
     Dates: start: 20160807, end: 20160807

REACTIONS (5)
  - Brain compression [Recovered/Resolved with Sequelae]
  - Unresponsive to stimuli [Unknown]
  - Off label use [Recovered/Resolved]
  - Product quality issue [Recovered/Resolved with Sequelae]
  - Brain herniation [Unknown]

NARRATIVE: CASE EVENT DATE: 20160807
